FAERS Safety Report 9452699 (Version 1)
Quarter: 2013Q3

REPORT INFORMATION
  Report Type: Spontaneous
  Country: US (occurrence: US)
  Receive Date: 20130812
  Receipt Date: 20130812
  Transmission Date: 20140515
  Serious: Yes (Hospitalization, Disabling, Other)
  Sender: FDA-Public Use
  Company Number: US-009507513-1308USA001955

PATIENT
  Sex: Male

DRUGS (1)
  1. LISINOPRIL [Suspect]

REACTIONS (4)
  - Local swelling [Unknown]
  - Drug hypersensitivity [Unknown]
  - Cerebrovascular accident [Unknown]
  - Obstructive airways disorder [Unknown]
